FAERS Safety Report 7363009-4 (Version None)
Quarter: 2011Q1

REPORT INFORMATION
  Report Type: 
  Country: None (occurrence: None)
  Receive Date: 20110321
  Receipt Date: 20110302
  Transmission Date: 20110831
  Serious: Yes (Other)
  Sender: FDA-Public Use
  Company Number: US-PFIZER INC-2011055634

PATIENT
  Age: 4 Year
  Sex: Female
  Weight: 14.512 kg

DRUGS (5)
  1. DIPHENHYDRAMINE [Suspect]
     Indication: ILL-DEFINED DISORDER
     Dosage: 5 ML, UNK
     Route: 048
  2. IBUPROFEN [Suspect]
     Indication: GASTROENTERITIS VIRAL
  3. CHILDREN'S TYLENOL SUSPENSION [Suspect]
     Indication: PYREXIA
     Dosage: 160 MG, UNK
     Route: 048
     Dates: start: 20100503, end: 20100528
  4. CHILDREN'S TYLENOL SUSPENSION [Suspect]
     Indication: GASTROENTERITIS VIRAL
     Dosage: 160 MG, UNKNOWN
  5. IBUPROFEN [Suspect]
     Indication: PYREXIA
     Dosage: 100 MG, UNK
     Route: 048
     Dates: start: 20100503, end: 20100528

REACTIONS (6)
  - ABDOMINAL PAIN UPPER [None]
  - PEPTIC ULCER [None]
  - FEELING ABNORMAL [None]
  - PRODUCT QUALITY ISSUE [None]
  - URTICARIA [None]
  - NAUSEA [None]
